FAERS Safety Report 25149053 (Version 2)
Quarter: 2025Q2

REPORT INFORMATION
  Report Type: Spontaneous
  Country: US (occurrence: US)
  Receive Date: 20250402
  Receipt Date: 20250411
  Transmission Date: 20250717
  Serious: Yes (Other)
  Sender: RANBAXY
  Company Number: US-SUN PHARMACEUTICAL INDUSTRIES LTD-2025R1-501723

PATIENT
  Age: 45 Year
  Sex: Male

DRUGS (1)
  1. NOREPINEPHRINE BITARTRATE [Suspect]
     Active Substance: NOREPINEPHRINE BITARTRATE
     Indication: Hypotension
     Route: 065

REACTIONS (4)
  - Arteriospasm coronary [Recovering/Resolving]
  - Cardiac arrest [Unknown]
  - Ventricular tachycardia [Unknown]
  - Electrocardiogram ST segment elevation [Recovered/Resolved]
